FAERS Safety Report 8399907-2 (Version None)
Quarter: 2012Q2

REPORT INFORMATION
  Report Type: 
  Country: None (occurrence: None)
  Receive Date: 20120531
  Receipt Date: 20120521
  Transmission Date: 20120825
  Serious: Yes (Other)
  Sender: FDA-Public Use
  Company Number: US-ELI_LILLY_AND_COMPANY-US201204007314

PATIENT
  Sex: Female

DRUGS (2)
  1. FORTEO [Suspect]
     Indication: OSTEOPOROSIS
     Dosage: 20 UG, QD
     Dates: start: 20120328
  2. CALCIUM [Concomitant]

REACTIONS (7)
  - RENAL IMPAIRMENT [None]
  - INJECTION SITE HAEMATOMA [None]
  - OSTEOMA [None]
  - BLOOD CALCIUM INCREASED [None]
  - RENAL MASS [None]
  - MYALGIA [None]
  - PAIN IN EXTREMITY [None]
